FAERS Safety Report 4689923-6 (Version None)
Quarter: 2005Q2

REPORT INFORMATION
  Report Type: 
  Country: None (occurrence: None)
  Receive Date: 20050608
  Receipt Date: 20050201
  Transmission Date: 20051028
  Serious: No
  Sender: FDA-Public Use
  Company Number: 2005-BP-01510BP

PATIENT
  Sex: Female

DRUGS (9)
  1. SPIRIVA [Suspect]
     Indication: CHRONIC OBSTRUCTIVE PULMONARY DISEASE
     Dosage: 18 MCG (18 MCG), IH
     Route: 055
     Dates: start: 20040601, end: 20041201
  2. XANAX [Concomitant]
  3. LASIX [Concomitant]
  4. CATAPRES [Concomitant]
  5. ACCUPRIL [Concomitant]
  6. THEOPHYLLINE [Concomitant]
  7. PULMICORT [Concomitant]
  8. SEREVENT DISCUS (SALMETEROL XINAFOATE) [Concomitant]
  9. ATROVENT [Concomitant]

REACTIONS (1)
  - DYSPNOEA EXACERBATED [None]
